FAERS Safety Report 6552862-X (Version None)
Quarter: 2010Q1

REPORT INFORMATION
  Report Type: 
  Country: None (occurrence: None)
  Receive Date: 20100126
  Receipt Date: 20100115
  Transmission Date: 20100710
  Serious: Yes (Death)
  Sender: FDA-Public Use
  Company Number: US-JNJCH-2010001681

PATIENT
  Age: 47 Year
  Sex: Male

DRUGS (4)
  1. DEXTROMETHORPHAN [Suspect]
     Indication: SUICIDE ATTEMPT
     Dosage: TEXT:UNKNOWN
     Route: 048
  2. ACETAMINOPHEN AND HYDROCODONE BITARTRATE [Suspect]
     Indication: SUICIDE ATTEMPT
     Dosage: TEXT:UNKNOWN
     Route: 048
  3. LORAZEPAM [Suspect]
     Indication: SUICIDE ATTEMPT
     Dosage: TEXT:UNKNOWN
     Route: 048
  4. ALPRAZOLAM [Suspect]
     Indication: SUICIDE ATTEMPT
     Dosage: TEXT:UNKNOWN
     Route: 048

REACTIONS (1)
  - DRUG TOXICITY [None]
